FAERS Safety Report 4413648-5 (Version None)
Quarter: 2004Q2

REPORT INFORMATION
  Report Type: 
  Country: None (occurrence: None)
  Receive Date: 20040630
  Receipt Date: 20040421
  Transmission Date: 20050107
  Serious: No
  Sender: FDA-Public Use
  Company Number: 04P-163-0258806-00

PATIENT
  Age: 71 Year
  Sex: Female
  Weight: 83.9154 kg

DRUGS (13)
  1. HUMIRA [Suspect]
     Indication: RHEUMATOID ARTHRITIS
     Dosage: 40 MG, 1 IN 2 WK, INJECTION
     Dates: start: 20040201
  2. METHOTREXATE [Concomitant]
  3. OMEPRAZOLE [Concomitant]
  4. ATENOLOL [Concomitant]
  5. THYROID TAB [Concomitant]
  6. MIRAPEX [Concomitant]
  7. NITROFURANTOIN [Concomitant]
  8. MULTI-VITAMINS [Concomitant]
  9. CALTRATE 600 [Concomitant]
  10. ERGOCALCIFEROL [Concomitant]
  11. ACIDOPHILUS [Concomitant]
  12. HYDROCODONE [Concomitant]
  13. NAPROXEN SODIUM [Concomitant]

REACTIONS (1)
  - BACK PAIN [None]
